FAERS Safety Report 5330818-2 (Version None)
Quarter: 2007Q2

REPORT INFORMATION
  Report Type: 
  Country: None (occurrence: None)
  Receive Date: 20070518
  Receipt Date: 20070518
  Transmission Date: 20071010
  Serious: No
  Sender: FDA-Public Use
  Company Number: None

PATIENT
  Age: 17 Year
  Sex: Male
  Weight: 53.978 kg

DRUGS (1)
  1. QUETIAPINE FUMARATE [Suspect]
     Indication: BIPOLAR DISORDER
     Dosage: 500 MG PO - QHS
     Route: 048
     Dates: start: 20070417, end: 20070514

REACTIONS (6)
  - ANURIA [None]
  - CONFUSIONAL STATE [None]
  - DYSARTHRIA [None]
  - IMPULSIVE BEHAVIOUR [None]
  - INCORRECT DOSE ADMINISTERED [None]
  - SUICIDE ATTEMPT [None]
